FAERS Safety Report 7732994-0 (Version None)
Quarter: 2011Q3

REPORT INFORMATION
  Report Type: 
  Country: None (occurrence: None)
  Receive Date: 20110907
  Receipt Date: 20110825
  Transmission Date: 20111222
  Serious: Yes (Hospitalization)
  Sender: FDA-Public Use
  Company Number: BR-US-EMD SERONO, INC.-7069765

PATIENT
  Sex: Female

DRUGS (6)
  1. REBIF [Suspect]
     Indication: RELAPSING-REMITTING MULTIPLE SCLEROSIS
     Dates: start: 20080708
  2. CARBAMAZEPINE [Concomitant]
  3. HYDROCHLORIDE TIZANIDINE [Concomitant]
  4. OMEPRAZOLE [Concomitant]
  5. IBUPROFEN [Concomitant]
  6. ROHYPNOL [Concomitant]

REACTIONS (3)
  - MUSCULAR WEAKNESS [None]
  - MULTIPLE SCLEROSIS RELAPSE [None]
  - ARTHRALGIA [None]
